FAERS Safety Report 13311081 (Version 4)
Quarter: 2022Q3

REPORT INFORMATION
  Report Type: Spontaneous
  Country: US (occurrence: US)
  Receive Date: 20170309
  Receipt Date: 20220911
  Transmission Date: 20221027
  Serious: No
  Sender: FDA-Public Use
  Company Number: US-JNJFOC-20170213638

PATIENT
  Age: 21 Year
  Sex: Male

DRUGS (3)
  1. RISPERDAL [Suspect]
     Active Substance: RISPERIDONE
     Indication: Mental disorder
     Route: 048
     Dates: start: 20010326, end: 2016
  2. RISPERIDONE [Suspect]
     Active Substance: RISPERIDONE
     Indication: Product used for unknown indication
     Route: 048
  3. RISPERIDONE [Suspect]
     Active Substance: RISPERIDONE
     Indication: Product used for unknown indication
     Route: 065

REACTIONS (3)
  - Emotional disorder [Unknown]
  - Gynaecomastia [Unknown]
  - Weight increased [Unknown]

NARRATIVE: CASE EVENT DATE: 20170306
